FAERS Safety Report 4634991-0 (Version None)
Quarter: 2005Q2

REPORT INFORMATION
  Report Type: 
  Country: None (occurrence: None)
  Receive Date: 20050414
  Receipt Date: 20050405
  Transmission Date: 20051028
  Serious: Yes (Hospitalization)
  Sender: FDA-Public Use
  Company Number: 200511203FR

PATIENT
  Age: 55 Year
  Sex: Male
  Weight: 100 kg

DRUGS (17)
  1. LASILIX [Suspect]
     Route: 048
     Dates: start: 20050228, end: 20050302
  2. QUINIMAX [Suspect]
     Indication: MALARIA
     Route: 042
     Dates: start: 20050227, end: 20050304
  3. LEXOMIL [Suspect]
     Route: 048
     Dates: start: 20050228, end: 20050303
  4. INSUMAN [Concomitant]
     Indication: DIABETES MELLITUS NON-INSULIN-DEPENDENT
     Route: 058
     Dates: start: 20050227, end: 20050308
  5. LOVENOX [Concomitant]
     Route: 058
     Dates: start: 20050227
  6. IKOREL [Concomitant]
     Route: 048
     Dates: start: 20050301, end: 20050302
  7. AMARYL [Concomitant]
     Indication: DIABETES MELLITUS NON-INSULIN-DEPENDENT
     Route: 048
     Dates: start: 20050301, end: 20050227
  8. RISORDAN [Concomitant]
     Dates: start: 20050301, end: 20050227
  9. KARDEGIC [Concomitant]
     Route: 048
     Dates: start: 20050301, end: 20050302
  10. ROCEPHIN [Concomitant]
     Indication: ERYSIPELAS
     Route: 030
     Dates: start: 20050201, end: 20050301
  11. MOPRAL [Concomitant]
     Route: 048
  12. QUININE SULFATE [Concomitant]
     Indication: MALARIA
     Dates: start: 20050201
  13. AMOXICILLIN [Concomitant]
     Dates: start: 20050201
  14. AUGMENTIN [Concomitant]
     Dates: start: 20050201
  15. GLUCOPHAGE [Concomitant]
     Indication: DIABETES MELLITUS NON-INSULIN-DEPENDENT
     Route: 048
     Dates: start: 20050301, end: 20050227
  16. ALDACTONE [Concomitant]
     Route: 048
     Dates: start: 20050301, end: 20050227
  17. PROPRANOLOL HYDROCHLORIDE [Concomitant]
     Dates: start: 20050301, end: 20050227

REACTIONS (2)
  - DYSPNOEA [None]
  - RESPIRATORY DISTRESS [None]
